FAERS Safety Report 8987025 (Version 4)
Quarter: 2013Q1

REPORT INFORMATION
  Report Type: Spontaneous
  Country: US (occurrence: US)
  Receive Date: 20121227
  Receipt Date: 20130222
  Transmission Date: 20140127
  Serious: Yes (Hospitalization, Other)
  Sender: FDA-Public Use
  Company Number: US-BIOGENIDEC-2012BI063157

PATIENT
  Age: 60 Year
  Sex: Female

DRUGS (1)
  1. TYSABRI [Suspect]
     Indication: MULTIPLE SCLEROSIS
     Route: 042
     Dates: start: 20110825, end: 20120928

REACTIONS (5)
  - Cardiac operation [Recovered/Resolved]
  - Coagulopathy [Recovered/Resolved]
  - Arterial stent insertion [Recovered/Resolved]
  - Chest pain [Recovered/Resolved]
  - Fatigue [Not Recovered/Not Resolved]
